FAERS Safety Report 4833692-3 (Version None)
Quarter: 2005Q4

REPORT INFORMATION
  Report Type: 
  Country: None (occurrence: None)
  Receive Date: 20051114
  Receipt Date: 20051102
  Transmission Date: 20060501
  Serious: Yes (Other)
  Sender: FDA-Public Use
  Company Number: US-YAMANOUCHI-YPA20050481

PATIENT
  Age: 78 Year
  Sex: Male
  Weight: 77.1115 kg

DRUGS (11)
  1. VESICARE [Suspect]
     Indication: POLLAKIURIA
     Dosage: 5 MG QD PO
     Route: 048
     Dates: start: 20050913
  2. ATENOLOL [Concomitant]
  3. ENALAPRIL [Concomitant]
  4. FUROSEMIDE [Concomitant]
  5. LIPITOR [Concomitant]
  6. ZETIA [Concomitant]
  7. ASPIRIN [Concomitant]
  8. PHOSLOGEL [Concomitant]
  9. KAYEXALATE [Concomitant]
  10. TRAVATAN [Concomitant]
  11. UROXATRAL [Concomitant]

REACTIONS (1)
  - BLOOD GLUCOSE INCREASED [None]
